FAERS Safety Report 16422607 (Version 1)
Quarter: 2019Q2

REPORT INFORMATION
  Report Type: Spontaneous
  Country: US (occurrence: US)
  Receive Date: 20190612
  Receipt Date: 20190612
  Transmission Date: 20190711
  Serious: No
  Sender: FDA-Public Use
  Company Number: US-BAUSCH-BL-2018-033651

PATIENT
  Age: 91 Year
  Sex: Female

DRUGS (4)
  1. MURO 128 [Suspect]
     Active Substance: SODIUM CHLORIDE
     Indication: EYE DISORDER
  2. OFLOXACIN. [Suspect]
     Active Substance: OFLOXACIN
     Indication: EYE DISORDER
     Route: 047
     Dates: start: 201811, end: 201811
  3. OFLOXACIN. [Suspect]
     Active Substance: OFLOXACIN
     Indication: POSTOPERATIVE CARE
  4. MURO 128 [Suspect]
     Active Substance: SODIUM CHLORIDE
     Indication: POSTOPERATIVE CARE
     Dosage: AS DIRECTED - SQUEEZED A SMALL AMOUNT OF OINTMENT AND APPLIED TO BOTH EYES AT BEDTIME
     Route: 047
     Dates: start: 201811, end: 201811

REACTIONS (1)
  - Headache [Recovered/Resolved]

NARRATIVE: CASE EVENT DATE: 201811
